APPROVED DRUG PRODUCT: TEMAZEPAM
Active Ingredient: TEMAZEPAM
Strength: 15MG
Dosage Form/Route: CAPSULE;ORAL
Application: A071620 | Product #002 | TE Code: AB
Applicant: ACTAVIS ELIZABETH LLC
Approved: Aug 7, 1987 | RLD: No | RS: No | Type: RX